FAERS Safety Report 6363273 (Version 2)
Quarter: 2014Q2

REPORT INFORMATION
  Report Type: Spontaneous
  Country: US (occurrence: US)
  Receive Date: 20070530
  Receipt Date: 20140510
  Transmission Date: 20141212
  Serious: No
  Sender: FDA-Public Use
  Company Number: 2007PV027728

PATIENT
  Age: 67 Year
  Sex: Female

DRUGS (1)
  1. BYETTA PEN DISPOSABLE [Suspect]
     Indication: TYPE 2 DIABETES MELLITUS
     Dosage: 01JAN2007:5MCG/2/1/DAY?28OCT13:10MCG
     Route: 058
     Dates: start: 2005

REACTIONS (7)
  - Heart rate increased [Recovered/Resolved]
  - Influenza like illness [Recovered/Resolved]
  - Feeling abnormal [Unknown]
  - Oropharyngeal pain [Unknown]
  - Headache [Recovered/Resolved]
  - Feeling jittery [Recovered/Resolved]
  - Drug ineffective [Unknown]
